FAERS Safety Report 17414364 (Version 3)
Quarter: 2020Q3

REPORT INFORMATION
  Report Type: Report from Study
  Country: TW (occurrence: TW)
  Receive Date: 20200213
  Receipt Date: 20200708
  Transmission Date: 20201102
  Serious: Yes (Hospitalization)
  Sender: FDA-Public Use
  Company Number: NVSC2020TW003070

PATIENT
  Age: 47 Year
  Sex: Female
  Weight: 53.4 kg

DRUGS (40)
  1. APREPITANT. [Concomitant]
     Active Substance: APREPITANT
     Indication: PREMEDICATION
     Dosage: UNK
     Route: 065
     Dates: start: 20191220, end: 20191222
  2. DEXAMETHASONE. [Concomitant]
     Active Substance: DEXAMETHASONE
     Indication: PREMEDICATION
     Dosage: UNK
     Route: 065
     Dates: start: 20191219, end: 20191219
  3. SEROQUEL [Concomitant]
     Active Substance: QUETIAPINE FUMARATE
     Indication: DEPRESSION
  4. PLACEBO [Suspect]
     Active Substance: UNSPECIFIED INGREDIENT
     Dosage: CODE NOT BROKEN
     Route: 058
     Dates: start: 20200121
  5. COMPARATOR PEMETREXED [Suspect]
     Active Substance: PEMETREXED DISODIUM
     Indication: NON-SMALL CELL LUNG CANCER
     Dosage: 500 MG/M2, Q3W
     Route: 042
     Dates: start: 20191219, end: 20191219
  6. DEXAMETHASONE. [Concomitant]
     Active Substance: DEXAMETHASONE
     Dosage: UNK
     Route: 065
     Dates: start: 20191220, end: 20191223
  7. HYDROXOCOBALAMIN [Concomitant]
     Active Substance: HYDROXOCOBALAMIN
     Indication: CHEMOTHERAPY
     Dosage: UNK
     Route: 065
     Dates: start: 20191219, end: 20191219
  8. LEXAPRO [Concomitant]
     Active Substance: ESCITALOPRAM OXALATE
     Indication: DEPRESSION
  9. PREDNISOLONE. [Concomitant]
     Active Substance: PREDNISOLONE
     Indication: ALANINE AMINOTRANSFERASE INCREASED
     Dosage: UNK
     Route: 065
     Dates: start: 20191231, end: 20200103
  10. BLINDED ACZ885 [Suspect]
     Active Substance: CANAKINUMAB
     Dosage: CODE NOT BROKEN
     Route: 058
     Dates: start: 20200121
  11. CHLORPHENAMINE [Concomitant]
     Active Substance: CHLORPHENIRAMINE MALEATE
     Indication: PREMEDICATION
     Dosage: UNK
     Route: 065
     Dates: start: 20191219, end: 20191219
  12. PALONOSETRON. [Concomitant]
     Active Substance: PALONOSETRON HYDROCHLORIDE
     Indication: PREMEDICATION
     Dosage: UNK
     Route: 065
     Dates: start: 20191219, end: 20191219
  13. XANAX [Concomitant]
     Active Substance: ALPRAZOLAM
     Indication: ANXIETY
     Dosage: UNK
     Route: 065
     Dates: start: 20191204, end: 20191222
  14. COMPARATOR PEMBROLIZUMAB [Suspect]
     Active Substance: PEMBROLIZUMAB
     Indication: NON-SMALL CELL LUNG CANCER
     Dosage: 200 MG, Q3W
     Route: 042
     Dates: start: 20191219, end: 20191219
  15. BLINDED PEMBROLIZUMAB [Suspect]
     Active Substance: PEMBROLIZUMAB
     Indication: NON-SMALL CELL LUNG CANCER
     Dosage: CODE NOT BROKEN
     Route: 058
     Dates: start: 20191219, end: 20191219
  16. FLUIMUCIL A [Concomitant]
     Indication: COUGH
     Dosage: UNK
     Route: 065
     Dates: start: 20191204, end: 20191212
  17. CODEINE PHOSPHATE [Concomitant]
     Active Substance: CODEINE PHOSPHATE
     Indication: COUGH
     Dosage: UNK
     Route: 065
     Dates: start: 20191204, end: 20200402
  18. OXETHAZAINE [Concomitant]
     Active Substance: OXETHAZAINE
     Indication: NAUSEA
     Dosage: UNK
     Route: 065
     Dates: start: 20191218, end: 20200521
  19. PLACEBO [Suspect]
     Active Substance: UNSPECIFIED INGREDIENT
     Indication: NON-SMALL CELL LUNG CANCER
     Dosage: CODE NOT BROKEN
     Route: 058
     Dates: start: 20191219, end: 20191219
  20. BLINDED PEMBROLIZUMAB [Suspect]
     Active Substance: PEMBROLIZUMAB
     Dosage: CODE NOT BROKEN
     Route: 058
     Dates: start: 20200121
  21. COMPARATOR PEMETREXED [Suspect]
     Active Substance: PEMETREXED DISODIUM
     Dosage: 760 MG, Q3W
     Route: 042
     Dates: start: 20200121
  22. HERBESSER [Concomitant]
     Active Substance: DILTIAZEM HYDROCHLORIDE
     Indication: PALPITATIONS
     Dosage: UNK
     Route: 065
     Dates: start: 20191226
  23. INSULIN [Concomitant]
     Active Substance: INSULIN NOS
     Indication: PROPHYLAXIS
     Dosage: UNK
     Route: 065
     Dates: start: 20200104, end: 20200108
  24. BLINDED NO TREATMENT RECEIVED [Suspect]
     Active Substance: INVESTIGATIONAL PRODUCT
     Dosage: CODE NOT BROKEN
     Route: 058
     Dates: start: 20200121
  25. COMPARATOR CARBOPLATIN [Suspect]
     Active Substance: CARBOPLATIN
     Indication: NON-SMALL CELL LUNG CANCER
     Dosage: 625 MG, Q3W
     Route: 042
     Dates: start: 20191219, end: 20200121
  26. ULTRACET [Concomitant]
     Active Substance: ACETAMINOPHEN\TRAMADOL HYDROCHLORIDE
     Indication: CHEST PAIN
     Dosage: UNK
     Route: 065
     Dates: start: 20191204, end: 20200210
  27. BLINDED ACZ885 [Suspect]
     Active Substance: CANAKINUMAB
     Indication: NON-SMALL CELL LUNG CANCER
     Dosage: CODE NOT BROKEN
     Route: 058
     Dates: start: 20191219, end: 20191219
  28. BLINDED NO TREATMENT RECEIVED [Suspect]
     Active Substance: INVESTIGATIONAL PRODUCT
     Indication: NON-SMALL CELL LUNG CANCER
     Dosage: CODE NOT BROKEN
     Route: 058
     Dates: start: 20191219, end: 20191219
  29. SILYMARIN [Concomitant]
     Active Substance: DIETARY SUPPLEMENT\HERBALS\MILK THISTLE
     Indication: ALANINE AMINOTRANSFERASE INCREASED
     Dosage: UNK
     Route: 065
     Dates: start: 20191226
  30. FLUPINE [Concomitant]
     Indication: ANXIETY
     Dosage: UNK
     Route: 065
     Dates: start: 20191216, end: 20200115
  31. FUROSEMIDE. [Concomitant]
     Active Substance: FUROSEMIDE
     Indication: PREMEDICATION
     Dosage: UNK
     Route: 065
     Dates: start: 20191219, end: 20191219
  32. SEROQUEL [Concomitant]
     Active Substance: QUETIAPINE FUMARATE
     Indication: ANXIETY
     Dosage: UNK
     Route: 065
     Dates: start: 20191231, end: 20200521
  33. LOXOL [Concomitant]
     Indication: COUGH
     Dosage: UNK
     Route: 065
     Dates: start: 20191212
  34. LEXAPRO [Concomitant]
     Active Substance: ESCITALOPRAM OXALATE
     Indication: ANXIETY
     Dosage: UNK
     Route: 065
     Dates: start: 20191216, end: 20200521
  35. AMBROXOL HYDROCHLORIDE [Concomitant]
     Active Substance: AMBROXOL HYDROCHLORIDE
     Indication: COUGH
     Dosage: UNK
     Route: 065
     Dates: start: 20191212, end: 20200521
  36. COMPARATOR CARBOPLATIN [Suspect]
     Active Substance: CARBOPLATIN
     Dosage: 604 MG, Q3W
     Route: 042
     Dates: start: 20200121
  37. CHLORPHENIRAMINE. [Concomitant]
     Active Substance: CHLORPHENIRAMINE
     Indication: PREMEDICATION
     Dosage: UNK
     Route: 065
     Dates: start: 20191219, end: 20191219
  38. DELCOPAN [Concomitant]
     Indication: COUGH
     Dosage: UNK
     Route: 065
     Dates: start: 20191204, end: 20191226
  39. IMOVANE [Concomitant]
     Active Substance: ZOPICLONE
     Indication: INSOMNIA
     Dosage: UNK
     Route: 065
     Dates: start: 20191204, end: 20200521
  40. FLUNEPAN [Concomitant]
     Indication: INSOMNIA
     Dosage: UNK
     Route: 065
     Dates: start: 20191216, end: 20200319

REACTIONS (2)
  - Alanine aminotransferase increased [Recovered/Resolved]
  - Alanine aminotransferase increased [Recovered/Resolved]

NARRATIVE: CASE EVENT DATE: 20200102
